FAERS Safety Report 19523662 (Version 2)
Quarter: 2021Q3

REPORT INFORMATION
  Report Type: Spontaneous
  Country: DE (occurrence: DE)
  Receive Date: 20210712
  Receipt Date: 20210730
  Transmission Date: 20211014
  Serious: Yes (Other)
  Sender: FDA-Public Use
  Company Number: NVSC2021DE109834

PATIENT
  Sex: Female
  Weight: 84 kg

DRUGS (14)
  1. ACETYLSALICYLIC ACID [Suspect]
     Active Substance: ASPIRIN
     Indication: SURGERY
     Dosage: 100
     Route: 065
     Dates: start: 2021
  2. SEDACUR [Suspect]
     Active Substance: HOPS\MELISSA OFFICINALIS\VALERIAN EXTRACT
     Indication: ANXIETY
     Dosage: UNK UNK, TID (2?2?0?2)
     Route: 065
  3. PANTOZOL [Suspect]
     Active Substance: PANTOPRAZOLE SODIUM
     Indication: PRODUCT USED FOR UNKNOWN INDICATION
     Dosage: 40 MG, QD (0?0?1?0 / DAILY)
     Route: 065
     Dates: start: 201910
  4. TOREM [Suspect]
     Active Substance: TORSEMIDE
     Indication: PRODUCT USED FOR UNKNOWN INDICATION
     Dosage: 5 MG, QD (1?0?0?0 / DAILY)
     Route: 065
  5. ELIQUIS [Suspect]
     Active Substance: APIXABAN
     Indication: SURGERY
     Dosage: UNK UNK, BID (1?0?1?0)
     Route: 065
     Dates: start: 201911, end: 2021
  6. ACETYLSALICYLIC ACID [Suspect]
     Active Substance: ASPIRIN
     Indication: THROMBOSIS PROPHYLAXIS
     Dosage: 100 MG, QD (1?0?0?0 / DAILY)
     Route: 065
     Dates: start: 201910, end: 2021
  7. CLEXANE [Suspect]
     Active Substance: ENOXAPARIN SODIUM
     Indication: THROMBOSIS PROPHYLAXIS
     Dosage: 80 MG, BID (1?0?1?0 / DAILY)
     Route: 065
     Dates: start: 2019
  8. BISOPROLOL 1A PHARMA 5 MG ? FILMTABLETTEN [Suspect]
     Active Substance: BISOPROLOL FUMARATE
     Indication: CARDIAC DISORDER
     Dosage: 5 MG QD  (HALF?0?0)
     Route: 048
     Dates: start: 20210701
  9. PALLADON [Suspect]
     Active Substance: HYDROMORPHONE
     Indication: PRODUCT USED FOR UNKNOWN INDICATION
     Dosage: 4 MG, BID (1?0?1?0 / DAILY)
     Route: 065
  10. ELIQUIS [Suspect]
     Active Substance: APIXABAN
     Dosage: UNK
     Route: 065
     Dates: start: 2021
  11. BISOPROLOL 1A PHARMA 5 MG ? FILMTABLETTEN [Suspect]
     Active Substance: BISOPROLOL FUMARATE
     Indication: HYPERTENSION
     Dosage: 5 MG, BID (HALF?0?HALF, INTAKE TWICE DAILY)
     Route: 048
     Dates: start: 201911, end: 20210601
  12. MORPHINE [Suspect]
     Active Substance: MORPHINE
     Indication: SURGERY
     Dosage: UNK
     Route: 065
     Dates: start: 201910
  13. CORDAREX [Suspect]
     Active Substance: AMIODARONE
     Indication: PRODUCT USED FOR UNKNOWN INDICATION
     Dosage: 200 MG, QID (1?1?1?1 / DAILY)
     Route: 065
     Dates: start: 20191026
  14. APIXABAN [Concomitant]
     Active Substance: APIXABAN
     Indication: PRODUCT USED FOR UNKNOWN INDICATION
     Dosage: 5 MG, BID (1?0?1)
     Route: 065

REACTIONS (18)
  - Diverticulum intestinal [Unknown]
  - Inappropriate schedule of product administration [Unknown]
  - Aortic dissection [Unknown]
  - Visual impairment [Not Recovered/Not Resolved]
  - Aortic arteriosclerosis [Unknown]
  - Hiatus hernia [Unknown]
  - Pain in extremity [Unknown]
  - Wrong technique in product usage process [Unknown]
  - Mitral valve incompetence [Unknown]
  - Dyschromatopsia [Not Recovered/Not Resolved]
  - Obesity [Unknown]
  - Aortic aneurysm [Unknown]
  - Varicose vein [Unknown]
  - Cerebral microangiopathy [Unknown]
  - Paraesthesia [Unknown]
  - Visual brightness [Not Recovered/Not Resolved]
  - Diplopia [Not Recovered/Not Resolved]
  - Aortic thrombosis [Unknown]

NARRATIVE: CASE EVENT DATE: 2019
